FAERS Safety Report 6334484-9 (Version None)
Quarter: 2009Q3

REPORT INFORMATION
  Report Type: 
  Country: None (occurrence: None)
  Receive Date: 20090827
  Receipt Date: 20090812
  Transmission Date: 20100115
  Serious: Yes (Hospitalization, Other)
  Sender: FDA-Public Use
  Company Number: 2009002436

PATIENT
  Age: 58 Year
  Sex: Male

DRUGS (17)
  1. TARCEVA [Suspect]
     Indication: LUNG NEOPLASM MALIGNANT
     Dosage: 150 MG, QD, ORAL
     Route: 048
     Dates: start: 20090513, end: 20090610
  2. GLIPIZIDE [Concomitant]
  3. LIPITOR [Concomitant]
  4. LOPRESSOR [Concomitant]
  5. PREVACID [Concomitant]
  6. TRICOR [Concomitant]
  7. VICODIN [Concomitant]
  8. XANAX [Concomitant]
  9. COLCHICINE (COLCHICINE) [Concomitant]
  10. DEMADEX [Concomitant]
  11. IMODIUM [Concomitant]
  12. NORCO [Concomitant]
  13. MEGACE [Concomitant]
  14. ASPIRIN [Concomitant]
  15. MINOCYCLINE HCL [Concomitant]
  16. FENTANYL [Concomitant]
  17. METFORMIN HCL [Concomitant]

REACTIONS (13)
  - ASTHENIA [None]
  - BLOOD CALCIUM INCREASED [None]
  - BLOOD GLUCOSE INCREASED [None]
  - BLOOD SODIUM DECREASED [None]
  - CHILLS [None]
  - COUGH [None]
  - DYSPHAGIA [None]
  - HAEMOGLOBIN DECREASED [None]
  - HAEMOPTYSIS [None]
  - MALIGNANT NEOPLASM PROGRESSION [None]
  - NAUSEA [None]
  - PAIN [None]
  - VOMITING [None]
